FAERS Safety Report 12650066 (Version 1)
Quarter: 2016Q3

REPORT INFORMATION
  Report Type: Spontaneous
  Country: US (occurrence: US)
  Receive Date: 20160813
  Receipt Date: 20160813
  Transmission Date: 20161109
  Serious: Yes (Life-Threatening, Hospitalization, Other)
  Sender: FDA-Public Use
  Company Number: US-ZYDUS-011885

PATIENT
  Age: 57 Year
  Sex: Female

DRUGS (1)
  1. WARFARIN [Suspect]
     Active Substance: WARFARIN
     Indication: ANTIPHOSPHOLIPID SYNDROME
     Route: 065

REACTIONS (12)
  - Dyspnoea [Recovering/Resolving]
  - Tachycardia [Recovering/Resolving]
  - Mental status changes [Recovering/Resolving]
  - Blood creatinine increased [Recovering/Resolving]
  - Blood sodium decreased [Recovering/Resolving]
  - Blood potassium decreased [Recovering/Resolving]
  - Blood glucose decreased [Recovering/Resolving]
  - Adrenal insufficiency [Recovering/Resolving]
  - Sepsis [Recovering/Resolving]
  - Urine output decreased [Recovering/Resolving]
  - Adrenal haemorrhage [Recovering/Resolving]
  - Hypotension [Recovering/Resolving]
